FAERS Safety Report 9437920 (Version 1)
Quarter: 2013Q3

REPORT INFORMATION
  Report Type: Spontaneous
  Country: US (occurrence: US)
  Receive Date: 20130802
  Receipt Date: 20130802
  Transmission Date: 20140515
  Serious: No
  Sender: FDA-Public Use
  Company Number: US-BRISTOL-MYERS SQUIBB COMPANY-18760629

PATIENT
  Age: 58 Year
  Sex: Female
  Weight: 42.63 kg

DRUGS (1)
  1. COUMADIN [Suspect]
     Dosage: 5 MG TABLETS: NDC#-0056-0172-70?4/5MG INCREASED TO 5/10 MG, 15 MG, 17.5 MG

REACTIONS (1)
  - Drug ineffective [Unknown]
